FAERS Safety Report 9336756 (Version 2)
Quarter: 2013Q3

REPORT INFORMATION
  Report Type: Spontaneous
  Country: GB (occurrence: GB)
  Receive Date: 20130607
  Receipt Date: 20130703
  Transmission Date: 20140515
  Serious: Yes (Other)
  Sender: FDA-Public Use
  Company Number: PHFR2013GB003265

PATIENT
  Age: 33 Year
  Sex: Female

DRUGS (6)
  1. CLOZARIL [Suspect]
     Indication: SCHIZOPHRENIA
     Dosage: UNK
     Route: 048
     Dates: start: 20020703
  2. LAMOTRIGIN [Concomitant]
  3. METFORMIN [Concomitant]
  4. HYOSCINE [Concomitant]
  5. CITALOPRAM [Concomitant]
  6. BETNOVATE [Concomitant]

REACTIONS (3)
  - Psoriasis [Unknown]
  - White blood cell count increased [Unknown]
  - Neutrophil count increased [Unknown]
